FAERS Safety Report 5239745-2 (Version None)
Quarter: 2007Q1

REPORT INFORMATION
  Report Type: 
  Country: None (occurrence: None)
  Receive Date: 20070213
  Receipt Date: 20070213
  Transmission Date: 20070707
  Serious: Yes (Other)
  Sender: FDA-Public Use
  Company Number: None

PATIENT
  Age: 50 Year
  Sex: Female
  Weight: 86.1834 kg

DRUGS (2)
  1. ZICAM NASAL SPRAY ZINC - STRENGTH UNKNOWN MATRIXX INITIATIVES [Suspect]
     Indication: NASOPHARYNGITIS
     Dates: start: 20040222, end: 20040222
  2. ZICAM NASAL SPRAY ZINC - STRENGTH UNKNOWN MATRIXX INITIATIVES [Suspect]
     Indication: PROPHYLAXIS
     Dates: start: 20040222, end: 20040222

REACTIONS (4)
  - AGEUSIA [None]
  - ANOSMIA [None]
  - NASAL DISCOMFORT [None]
  - WRONG TECHNIQUE IN DRUG USAGE PROCESS [None]
